FAERS Safety Report 13509210 (Version 1)
Quarter: 2017Q2

REPORT INFORMATION
  Report Type: Spontaneous
  Country: FR (occurrence: FR)
  Receive Date: 20170503
  Receipt Date: 20170503
  Transmission Date: 20170830
  Serious: Yes (Other)
  Sender: FDA-Public Use
  Company Number: FR-EMCURE PHARMS-2017HTG00101

PATIENT
  Age: 66 Year
  Sex: Male

DRUGS (4)
  1. CYTARABINE KABI [Suspect]
     Active Substance: CYTARABINE
     Indication: B-CELL LYMPHOMA STAGE IV
     Dosage: 400 MG/M2, (800 MG DAILY)
     Route: 042
     Dates: start: 20161210, end: 20161213
  2. ETOPOPHOS [Suspect]
     Active Substance: ETOPOSIDE PHOSPHATE
     Indication: B-CELL LYMPHOMA STAGE IV
     Dosage: 200 MG/M2, (400 MG DAILY)
     Route: 042
     Dates: start: 20161210, end: 20161213
  3. ALKERAN [Suspect]
     Active Substance: MELPHALAN
     Indication: B-CELL LYMPHOMA STAGE IV
     Dosage: 140 MG/M2, (300 MG IN TOTAL)
     Route: 042
     Dates: start: 20161214, end: 20161214
  4. BICNU [Suspect]
     Active Substance: CARMUSTINE
     Indication: B-CELL LYMPHOMA STAGE IV
     Dosage: 300 MG/M2, (600 MG IN TOTAL)
     Route: 042
     Dates: start: 20161209, end: 20171209

REACTIONS (9)
  - Lung disorder [Recovered/Resolved]
  - Atrial fibrillation [Recovered/Resolved]
  - Aplasia [Recovered/Resolved]
  - Escherichia test positive [Recovered/Resolved]
  - Respiratory distress [Recovered/Resolved]
  - Colitis [Recovered/Resolved]
  - Pyrexia [Recovered/Resolved]
  - Cough [Recovered/Resolved]
  - Viral test positive [Recovered/Resolved]

NARRATIVE: CASE EVENT DATE: 201612
